FAERS Safety Report 7228379-6 (Version None)
Quarter: 2011Q1

REPORT INFORMATION
  Report Type: 
  Country: None (occurrence: None)
  Receive Date: 20110114
  Receipt Date: 20110110
  Transmission Date: 20110831
  Serious: Yes (Other)
  Sender: FDA-Public Use
  Company Number: DE-PFIZER INC-2010157749

PATIENT
  Age: 41 Year
  Sex: Female

DRUGS (1)
  1. LYRICA [Suspect]
     Dosage: 20 MG, 3X/DAY
     Dates: start: 20070101

REACTIONS (3)
  - PITUITARY TUMOUR BENIGN [None]
  - BLOOD PROLACTIN INCREASED [None]
  - BREAST PAIN [None]
